FAERS Safety Report 10202173 (Version 2)
Quarter: 2014Q2

REPORT INFORMATION
  Report Type: Spontaneous
  Country: FR (occurrence: FR)
  Receive Date: 20140528
  Receipt Date: 20140625
  Transmission Date: 20141212
  Serious: Yes (Other)
  Sender: FDA-Public Use
  Company Number: FR-009507513-1405FRA014008

PATIENT
  Age: 62 Year
  Sex: Female

DRUGS (4)
  1. TRUSOPT 20MG/ML, COLLYRE EN SOLUTION [Suspect]
     Dosage: UNK
     Route: 065
     Dates: start: 20130531, end: 201403
  2. ALPHAGAN [Suspect]
     Dosage: UNK
     Route: 065
     Dates: start: 20130531, end: 201406
  3. LUMIGAN [Suspect]
     Dosage: UNK
     Route: 065
     Dates: start: 20130131, end: 201403
  4. MONOPROST [Concomitant]
     Dosage: UNK
     Dates: start: 201405, end: 201406

REACTIONS (3)
  - Acne [Recovered/Resolved]
  - General physical health deterioration [Recovered/Resolved]
  - Hepatic enzyme increased [Recovered/Resolved]
